FAERS Safety Report 6553016-3 (Version None)
Quarter: 2010Q1

REPORT INFORMATION
  Report Type: 
  Country: None (occurrence: None)
  Receive Date: 20100120
  Receipt Date: 20091230
  Transmission Date: 20100710
  Serious: Yes (Other)
  Sender: FDA-Public Use
  Company Number: SEP-2009-00020

PATIENT
  Age: 70 Year
  Sex: Male

DRUGS (1)
  1. PLENAXIS [Suspect]
     Indication: PROSTATE CANCER METASTATIC
     Dosage: INTRAMUSCULAR
     Route: 030
     Dates: start: 20091208, end: 20091229

REACTIONS (1)
  - RASH [None]
